FAERS Safety Report 21087722 (Version 1)
Quarter: 2022Q3

REPORT INFORMATION
  Report Type: Spontaneous
  Country: US (occurrence: None)
  Receive Date: 20220714
  Receipt Date: 20220714
  Transmission Date: 20221027
  Serious: Yes (Hospitalization)
  Sender: FDA-Public Use
  Company Number: None

PATIENT
  Age: 74 Year
  Sex: Female

DRUGS (1)
  1. OPSUMIT [Suspect]
     Active Substance: MACITENTAN
     Indication: Pulmonary arterial hypertension
     Dosage: FREQUENCY : DAILY;?
     Route: 048
     Dates: start: 20181213

REACTIONS (5)
  - Pulmonary mass [None]
  - Renal impairment [None]
  - Urinary retention [None]
  - Pleural effusion [None]
  - Oxygen saturation decreased [None]

NARRATIVE: CASE EVENT DATE: 20220623
